FAERS Safety Report 4907130-6 (Version None)
Quarter: 2006Q1

REPORT INFORMATION
  Report Type: 
  Country: None (occurrence: None)
  Receive Date: 20060206
  Receipt Date: 20060124
  Transmission Date: 20060701
  Serious: Yes (Other)
  Sender: FDA-Public Use
  Company Number: 2006EN000052

PATIENT
  Age: 3 Month
  Sex: Female

DRUGS (7)
  1. ADAGEN [Suspect]
     Indication: IMMUNODEFICIENCY CONGENITAL
     Dosage: SEE IMAGE, IM
     Route: 030
     Dates: start: 20051104, end: 20051110
  2. ADAGEN [Suspect]
     Indication: IMMUNODEFICIENCY CONGENITAL
     Dosage: SEE IMAGE, IM
     Route: 030
     Dates: start: 20051111, end: 20051118
  3. ADAGEN [Suspect]
     Indication: IMMUNODEFICIENCY CONGENITAL
     Dosage: SEE IMAGE, IM
     Route: 030
     Dates: start: 20051125, end: 20051201
  4. ADAGEN [Suspect]
     Indication: IMMUNODEFICIENCY CONGENITAL
     Dosage: SEE IMAGE, IM
     Route: 030
     Dates: start: 20051202
  5. COTRIM [Concomitant]
  6. FLEBOGAMMA [Concomitant]
  7. ACETYLSALICYLIC ACID SRT [Concomitant]

REACTIONS (4)
  - DEHYDRATION [None]
  - GASTROENTERITIS ROTAVIRUS [None]
  - LABORATORY TEST ABNORMAL [None]
  - THROMBOCYTHAEMIA [None]
